FAERS Safety Report 7265655-5 (Version None)
Quarter: 2011Q1

REPORT INFORMATION
  Report Type: 
  Country: None (occurrence: None)
  Receive Date: 20110131
  Receipt Date: 20110121
  Transmission Date: 20110831
  Serious: Yes (Death)
  Sender: FDA-Public Use
  Company Number: IT-MILLENNIUM PHARMACEUTICALS, INC.-2010-05892

PATIENT

DRUGS (16)
  1. OXYCONTIN [Concomitant]
     Indication: NEUROPATHY PERIPHERAL
     Dosage: UNK
     Route: 048
     Dates: start: 20100910
  2. ZOFRAN [Concomitant]
     Indication: PROPHYLAXIS
     Dosage: UNK
     Dates: start: 20101108, end: 20101110
  3. TAVOR                              /00273201/ [Concomitant]
     Indication: ANXIETY
     Dosage: 1 MG, UNK
     Route: 048
     Dates: start: 20101020
  4. LYRICA [Concomitant]
     Indication: NEUROPATHY PERIPHERAL
     Dosage: UNK
     Route: 048
     Dates: start: 20101020
  5. VELCADE [Suspect]
     Indication: MULTIPLE MYELOMA
     Dosage: 2.2 MG, CYCLIC
     Route: 042
     Dates: start: 20100928, end: 20101108
  6. DELTACORTENE [Concomitant]
     Dosage: UNK
     Dates: start: 20101109, end: 20101110
  7. TAZOCIN [Concomitant]
     Indication: PYREXIA
     Dosage: UNK
     Dates: start: 20101109, end: 20101110
  8. CAELYX [Suspect]
     Indication: MULTIPLE MYELOMA
     Dosage: 50 MG, CYCLIC
     Route: 042
     Dates: start: 20100928, end: 20101108
  9. BACTRIM [Concomitant]
     Indication: PROPHYLAXIS
     Dosage: UNK
     Route: 048
     Dates: start: 20100329
  10. DEXAMETHASONE [Suspect]
     Indication: MULTIPLE MYELOMA
     Dosage: 40 MG, UNK
     Route: 042
     Dates: start: 20100928, end: 20101108
  11. CRESTOR [Concomitant]
     Indication: DYSLIPIDAEMIA
     Route: 048
  12. CLEXANE [Concomitant]
     Indication: PROPHYLAXIS
     Dosage: UNK
     Route: 058
     Dates: start: 20100402
  13. LOSEC                              /00661201/ [Concomitant]
     Indication: PROPHYLAXIS
     Dosage: UNK
     Route: 048
     Dates: start: 20100608
  14. LASIX [Concomitant]
     Indication: PROPHYLAXIS
     Dosage: UNK
     Dates: start: 20101107, end: 20101110
  15. EUTIROX                            /00068001/ [Concomitant]
     Indication: HYPOTHYROIDISM
     Route: 048
  16. ESKIM [Concomitant]
     Indication: DYSLIPIDAEMIA
     Route: 048

REACTIONS (1)
  - CEREBRAL HAEMORRHAGE [None]
